FAERS Safety Report 6919644-8 (Version None)
Quarter: 2010Q3

REPORT INFORMATION
  Report Type: 
  Country: None (occurrence: None)
  Receive Date: 20100811
  Receipt Date: 20100802
  Transmission Date: 20110219
  Serious: Yes (Hospitalization)
  Sender: FDA-Public Use
  Company Number: GXKR2010NL08272

PATIENT
  Age: 81 Year
  Sex: Male

DRUGS (9)
  1. LISINOPRIL (NGX) [Suspect]
     Dosage: 20 MG, QD
     Route: 048
  2. LISINOPRIL (NGX) [Suspect]
     Dosage: 40 MG/DAY
     Route: 048
  3. DICLOFENAC (NGX) [Suspect]
     Dosage: 1 DF, TID, PRN
     Route: 048
  4. CHLORTHALIDONE (NGX) [Suspect]
     Dosage: 12.5 MG, QD
     Route: 048
  5. ATENOLOL [Concomitant]
     Dosage: 100 MG, QD
     Route: 065
  6. ATENOLOL [Concomitant]
     Dosage: 50 MG, QD
     Route: 065
  7. AMLODIPINE [Concomitant]
     Dosage: 10 MG, QD
     Route: 065
  8. ACETYLSALICYLIC ACID SRT [Concomitant]
     Dosage: 100 MG, QD
  9. OMEPRAZOLE [Concomitant]
     Dosage: 20 MG, QD

REACTIONS (3)
  - HYPERKALAEMIA [None]
  - RENAL FAILURE ACUTE [None]
  - URINE OUTPUT DECREASED [None]
